FAERS Safety Report 23492417 (Version 1)
Quarter: 2024Q1

REPORT INFORMATION
  Report Type: Other
  Country: KR (occurrence: None)
  Receive Date: 20240207
  Receipt Date: 20240207
  Transmission Date: 20240409
  Serious: Yes (Hospitalization)
  Sender: FDA-Public Use
  Company Number: KR-Encube-000568

PATIENT
  Age: 57 Year
  Sex: Male

DRUGS (3)
  1. METRONIDAZOLE [Suspect]
     Active Substance: METRONIDAZOLE
     Indication: Hepatic encephalopathy
     Dosage: TOTAL DOSE OF 30 G
  2. RIFAXIMIN [Concomitant]
     Active Substance: RIFAXIMIN
     Indication: Hepatic encephalopathy
  3. LACTULOSE [Concomitant]
     Active Substance: LACTULOSE
     Indication: Hepatic encephalopathy

REACTIONS (2)
  - Toxic encephalopathy [Recovered/Resolved]
  - Off label use [Unknown]
